FAERS Safety Report 22099631 (Version 2)
Quarter: 2023Q1

REPORT INFORMATION
  Report Type: Other
  Country: US (occurrence: None)
  Receive Date: 20230315
  Receipt Date: 20230322
  Transmission Date: 20230418
  Serious: Yes (Other)
  Sender: FDA-Public Use
  Company Number: US-ROCHE-3305516

PATIENT
  Age: 53 Year
  Sex: Female
  Weight: 68.100 kg

DRUGS (10)
  1. OCREVUS [Suspect]
     Active Substance: OCRELIZUMAB
     Indication: Relapsing-remitting multiple sclerosis
     Dosage: IV INFUSION ;ONGOING: YES 300 MG DAY 1 AND 14, SUBSEQUENTLY 600 MG FOR EVERY 6 MONTHS
     Route: 042
     Dates: start: 20200921
  2. ASPIRIN [Concomitant]
     Active Substance: ASPIRIN
  3. ROSUVASTATIN [Concomitant]
     Active Substance: ROSUVASTATIN
  4. LISINOPRIL [Concomitant]
     Active Substance: LISINOPRIL
  5. METOPROLOL [Concomitant]
     Active Substance: METOPROLOL
  6. MODAFINIL [Concomitant]
     Active Substance: MODAFINIL
  7. DULOXETINE [Concomitant]
     Active Substance: DULOXETINE
  8. ROPINIROLE [Concomitant]
     Active Substance: ROPINIROLE
  9. OMEPRAZOLE [Concomitant]
     Active Substance: OMEPRAZOLE
  10. DOCUSATE SODIUM [Concomitant]
     Active Substance: DOCUSATE SODIUM

REACTIONS (7)
  - Myocardial infarction [Unknown]
  - Peripheral artery occlusion [Recovered/Resolved]
  - Fatigue [Not Recovered/Not Resolved]
  - Myalgia [Not Recovered/Not Resolved]
  - Choking [Not Recovered/Not Resolved]
  - Pain in extremity [Unknown]
  - Contusion [Unknown]

NARRATIVE: CASE EVENT DATE: 20220801
